FAERS Safety Report 5360218-0 (Version None)
Quarter: 2007Q2

REPORT INFORMATION
  Report Type: 
  Country: None (occurrence: None)
  Receive Date: 20070612
  Receipt Date: 20070604
  Transmission Date: 20071010
  Serious: Yes (Death)
  Sender: FDA-Public Use
  Company Number: 2007AP000601

PATIENT
  Age: 42 Year
  Sex: Male
  Weight: 131 kg

DRUGS (1)
  1. TRAMADOL HYDROCHLORIDE [Suspect]

REACTIONS (11)
  - CARDIAC HYPERTROPHY [None]
  - CARDIOMEGALY [None]
  - COMPLETED SUICIDE [None]
  - CORONARY ARTERY DISEASE [None]
  - CORONARY ARTERY STENOSIS [None]
  - DRUG SCREEN POSITIVE [None]
  - FALSE POSITIVE LABORATORY RESULT [None]
  - HEPATIC STEATOSIS [None]
  - HEPATOMEGALY [None]
  - INTENTIONAL OVERDOSE [None]
  - NEPHROSCLEROSIS [None]
